FAERS Safety Report 11782857 (Version 3)
Quarter: 2016Q1

REPORT INFORMATION
  Report Type: Report from Study
  Country: US (occurrence: US)
  Receive Date: 20151127
  Receipt Date: 20160229
  Transmission Date: 20160525
  Serious: No
  Sender: FDA-Public Use
  Company Number: US-AMGEN-USASP2015124987

PATIENT
  Age: 61 Year
  Sex: Female
  Weight: 76.19 kg

DRUGS (1)
  1. ENBREL [Suspect]
     Active Substance: ETANERCEPT
     Indication: RHEUMATOID ARTHRITIS
     Dosage: 50 MG, QWK
     Route: 058
     Dates: start: 20150415

REACTIONS (8)
  - Sinus headache [Unknown]
  - Fatigue [Unknown]
  - Nasal congestion [Unknown]
  - Abdominal discomfort [Unknown]
  - Injection site pain [Unknown]
  - Sinus congestion [Unknown]
  - Sinusitis [Unknown]
  - Injection site pruritus [Unknown]

NARRATIVE: CASE EVENT DATE: 2015
